FAERS Safety Report 8357892-3 (Version None)
Quarter: 2012Q2

REPORT INFORMATION
  Report Type: 
  Country: None (occurrence: None)
  Receive Date: 20120514
  Receipt Date: 20120502
  Transmission Date: 20120825
  Serious: Yes (Hospitalization, Other)
  Sender: FDA-Public Use
  Company Number: FR-VERTEX PHARMACEUTICALS INC.-AE-2011-000141

PATIENT
  Sex: Male
  Weight: 100 kg

DRUGS (13)
  1. LEVOTHYROXINE SODIUM [Concomitant]
     Indication: HYPOTHYROIDISM
     Dates: start: 20110201
  2. COPEGUS [Concomitant]
     Dates: start: 20110629, end: 20110706
  3. COPEGUS [Concomitant]
     Route: 048
     Dates: start: 20110509, end: 20110628
  4. PEGASYS [Concomitant]
     Indication: HEPATITIS C
     Route: 058
     Dates: start: 20110520
  5. PROPRANOLOL [Concomitant]
     Indication: OESOPHAGEAL VARICES HAEMORRHAGE
     Dates: start: 20110201
  6. VX-950 [Suspect]
     Indication: HEPATITIS C
     Route: 048
     Dates: start: 20110320, end: 20110616
  7. CANDESARTAN CILEXETIL AND HYDROCHLOROTHIAZIDE [Concomitant]
     Indication: HYPERTENSION
     Dates: start: 20110201
  8. LANTUS [Concomitant]
     Indication: DIABETES MELLITUS
  9. METFORMIN HCL [Concomitant]
     Indication: DIABETES MELLITUS
     Dates: start: 20110201
  10. INSULIN [Concomitant]
     Indication: DIABETES MELLITUS
     Dates: start: 20110201
  11. COPEGUS [Concomitant]
     Indication: HEPATITIS C
     Route: 048
     Dates: start: 20110320, end: 20110426
  12. COPEGUS [Concomitant]
     Route: 048
     Dates: start: 20110427, end: 20110508
  13. RAMIPRIL [Concomitant]
     Indication: HYPERTENSION
     Dates: end: 20110408

REACTIONS (4)
  - ANAEMIA [None]
  - NEUTROPENIA [None]
  - BLOOD CREATININE INCREASED [None]
  - BLOOD UREA INCREASED [None]
